FAERS Safety Report 7684266-0 (Version None)
Quarter: 2011Q3

REPORT INFORMATION
  Report Type: 
  Country: None (occurrence: None)
  Receive Date: 20110815
  Receipt Date: 20110804
  Transmission Date: 20111222
  Serious: Yes (Death, Hospitalization)
  Sender: FDA-Public Use
  Company Number: US-CELGENEUS-163-21880-11062172

PATIENT
  Sex: Male

DRUGS (14)
  1. REVLIMID [Suspect]
     Indication: MULTIPLE MYELOMA
     Dosage: 25 MILLIGRAM
     Route: 048
     Dates: start: 20090401, end: 20090101
  2. HEPARIN [Concomitant]
     Dosage: 3 MILLILITER
     Route: 065
  3. LEVAQUIN [Concomitant]
     Dosage: 500 MILLIGRAM
     Route: 048
  4. HYDROCODONE [Concomitant]
     Indication: PAIN
     Route: 065
  5. PREDNISONE [Concomitant]
     Route: 048
  6. ACYCLOVIR [Concomitant]
     Dosage: 400 MILLIGRAM
     Route: 048
  7. ALLOPURINOL [Concomitant]
     Dosage: 100 MILLIGRAM
     Route: 048
  8. FENTANYL [Concomitant]
     Indication: PAIN
     Dosage: 25 MICROGRAM
     Route: 062
  9. SUCRALFATE [Concomitant]
     Dosage: 1 GRAM
     Route: 048
  10. REVLIMID [Suspect]
     Dosage: 15 MILLIGRAM
     Route: 048
     Dates: start: 20100301, end: 20110501
  11. DEXAMETHASONE [Concomitant]
     Indication: MULTIPLE MYELOMA
     Dosage: 8 MILLIGRAM
     Route: 048
     Dates: end: 20100101
  12. AMBIEN CR [Concomitant]
     Indication: SLEEP DISORDER
     Dosage: 6.25 MILLIGRAM
     Route: 048
  13. VALTREX [Concomitant]
     Dosage: 1000 MILLIGRAM
     Route: 048
  14. LORATADINE [Concomitant]
     Dosage: 10 MILLIGRAM
     Route: 048

REACTIONS (6)
  - ANAEMIA [None]
  - THROMBOCYTOPENIA [None]
  - INFECTION [None]
  - MULTIPLE MYELOMA [None]
  - GASTROINTESTINAL HAEMORRHAGE [None]
  - RASH VESICULAR [None]
